FAERS Safety Report 8457824-3 (Version None)
Quarter: 2012Q2

REPORT INFORMATION
  Report Type: 
  Country: None (occurrence: None)
  Receive Date: 20120622
  Receipt Date: 20120611
  Transmission Date: 20120825
  Serious: Yes (Hospitalization)
  Sender: FDA-Public Use
  Company Number: US-SHIRE-ALL1-2012-03056

PATIENT
  Sex: Male
  Weight: 163.27 kg

DRUGS (1)
  1. LIALDA [Suspect]
     Indication: CROHN'S DISEASE
     Dosage: 2.4 G, 2X/DAY:BID (2-1.2G TABLETS)
     Route: 048
     Dates: end: 20120508

REACTIONS (3)
  - INAPPROPRIATE SCHEDULE OF DRUG ADMINISTRATION [None]
  - OFF LABEL USE [None]
  - CROHN'S DISEASE [None]
